FAERS Safety Report 4658675-8 (Version None)
Quarter: 2005Q2

REPORT INFORMATION
  Report Type: 
  Country: None (occurrence: None)
  Receive Date: 20050509
  Receipt Date: 20050421
  Transmission Date: 20051028
  Serious: No
  Sender: FDA-Public Use
  Company Number: 2005-DE-01539GD

PATIENT
  Age: 6 Year
  Sex: Female

DRUGS (4)
  1. CYCLOPHOSPHAMIDE [Suspect]
  2. VINCRISTINE [Suspect]
  3. ETOPOSIDE [Suspect]
  4. CISPLATIN [Suspect]

REACTIONS (5)
  - BLINDNESS [None]
  - BLOOD PRESSURE INCREASED [None]
  - CONVULSION [None]
  - HEADACHE [None]
  - REVERSIBLE POSTERIOR LEUKOENCEPHALOPATHY SYNDROME [None]
